FAERS Safety Report 11175083 (Version 1)
Quarter: 2015Q2

REPORT INFORMATION
  Report Type: Spontaneous
  Country: US (occurrence: None)
  Receive Date: 20150515
  Receipt Date: 20150515
  Transmission Date: 20150821
  Serious: Yes (Other)
  Sender: FDA-Public Use
  Company Number: 2014001290

PATIENT
  Age: 47 Year
  Sex: Female

DRUGS (2)
  1. CIMZIA [Suspect]
     Active Substance: CERTOLIZUMAB PEGOL
     Indication: OFF LABEL USE
     Dosage: 200 MG, EV 2 WEEKS(QOW), EXPIRY DATE: JUL-2016
     Dates: start: 20090312, end: 2014
  2. CIMZIA [Suspect]
     Active Substance: CERTOLIZUMAB PEGOL
     Indication: CROHN^S DISEASE
     Dosage: 200 MG, EV 2 WEEKS(QOW), EXPIRY DATE: JUL-2016
     Dates: start: 20090312, end: 2014

REACTIONS (4)
  - Abscess [None]
  - Off label use [None]
  - Rash [None]
  - Urinary tract infection [None]

NARRATIVE: CASE EVENT DATE: 201401
